FAERS Safety Report 24183641 (Version 1)
Quarter: 2024Q3

REPORT INFORMATION
  Report Type: Spontaneous
  Country: MY (occurrence: MY)
  Receive Date: 20240807
  Receipt Date: 20240807
  Transmission Date: 20241016
  Serious: Yes (Life-Threatening)
  Sender: PFIZER
  Company Number: MY-PFIZER INC-202400230149

PATIENT
  Age: 11 Year
  Sex: Male

DRUGS (11)
  1. HYDROCORTISONE SODIUM SUCCINATE [Suspect]
     Active Substance: HYDROCORTISONE SODIUM SUCCINATE
     Indication: Asthma
     Dosage: 200 MG
     Route: 042
  2. HYDROCORTISONE SODIUM SUCCINATE [Suspect]
     Active Substance: HYDROCORTISONE SODIUM SUCCINATE
     Dosage: CONTINUED 6 HOURLY (RECEIVED SIX DOSES)
     Route: 051
  3. HYDROCORTISONE SODIUM SUCCINATE [Suspect]
     Active Substance: HYDROCORTISONE SODIUM SUCCINATE
     Dosage: (CUMULATIVE DOSE OF HYDROCORTISONE: 1000 MG) ON DAY 1
     Route: 042
  4. HYDROCORTISONE SODIUM SUCCINATE [Suspect]
     Active Substance: HYDROCORTISONE SODIUM SUCCINATE
     Dosage: (CUMULATIVE DOSE OF HYDROCORTISONE: 1400 MG), ON DAY 2
  5. PANCURONIUM [Suspect]
     Active Substance: PANCURONIUM
     Indication: Asthma
     Dosage: TEN DOSES, CONTINUED 6 HOURLY
  6. PANCURONIUM [Suspect]
     Active Substance: PANCURONIUM
     Dosage: UNK, (CUMULATIVE DOSE OF PANCURONIUM 20 MG) ON DAY 1
  7. PANCURONIUM [Suspect]
     Active Substance: PANCURONIUM
     Dosage: UNK, (CUMULATIVE DOSE OF PANCURONIUM 50 MG) ON DAY 2
  8. ALBUTEROL SULFATE [Concomitant]
     Active Substance: ALBUTEROL SULFATE
     Indication: Asthma
     Dosage: NEBULIZATION
     Route: 055
  9. ALBUTEROL SULFATE [Concomitant]
     Active Substance: ALBUTEROL SULFATE
     Dosage: 0.4 UG/KG/MIN
     Route: 042
  10. KETAMINE [Concomitant]
     Active Substance: KETAMINE
     Indication: Asthma
     Route: 042
  11. ATRACURIUM [Concomitant]
     Active Substance: ATRACURIUM
     Indication: Asthma
     Route: 042

REACTIONS (1)
  - Myopathy [Recovering/Resolving]
